FAERS Safety Report 22621591 (Version 1)
Quarter: 2023Q2

REPORT INFORMATION
  Report Type: Spontaneous
  Country: CN (occurrence: None)
  Receive Date: 20230620
  Receipt Date: 20230620
  Transmission Date: 20230721
  Serious: Yes (Hospitalization)
  Sender: FDA-Public Use
  Company Number: CN-ROCHE-3371961

PATIENT
  Age: 58 Year
  Sex: Female
  Weight: 49 kg

DRUGS (9)
  1. PERJETA [Suspect]
     Active Substance: PERTUZUMAB
     Indication: Breast cancer
     Dosage: 840 MG FIRST, FOLLOWED BY 420 MG
     Route: 041
     Dates: start: 20230325
  2. PERJETA [Suspect]
     Active Substance: PERTUZUMAB
     Route: 041
     Dates: start: 20230325
  3. CARBOPLATIN [Suspect]
     Active Substance: CARBOPLATIN
     Indication: Breast cancer
     Dosage: AUC 6, 21 DAYS AS A CYCLE FOR 6 CYCLES
     Route: 041
     Dates: start: 20230325
  4. HERCEPTIN [Suspect]
     Active Substance: TRASTUZUMAB
     Indication: Breast cancer
     Dosage: THE FIRST DOSE IS 8 MG/KG, FOLLOWED BY 6 MG/KG D1, 21 DAYS AS A CYCLE
     Route: 041
     Dates: start: 20230325
  5. HERCEPTIN [Suspect]
     Active Substance: TRASTUZUMAB
     Dosage: THE FIRST DOSE IS 8 MG/KG, FOLLOWED BY 6 MG/KG D1, 21 DAYS AS A CYCLE
     Route: 041
     Dates: start: 20230325
  6. PACLITAXEL [Suspect]
     Active Substance: PACLITAXEL
     Indication: Breast cancer
     Dosage: 21 DAYS AS A CYCLE FOR 6 CYCLES
     Route: 041
     Dates: start: 20230325
  7. SODIUM CHLORIDE [Concomitant]
     Active Substance: SODIUM CHLORIDE
     Route: 041
     Dates: start: 20230325
  8. SODIUM CHLORIDE [Concomitant]
     Active Substance: SODIUM CHLORIDE
     Route: 041
     Dates: start: 20230325
  9. DEXTROSE [Concomitant]
     Active Substance: DEXTROSE\DEXTROSE MONOHYDRATE
     Route: 041
     Dates: start: 20230325

REACTIONS (2)
  - Myelosuppression [Recovering/Resolving]
  - Diarrhoea [Recovering/Resolving]

NARRATIVE: CASE EVENT DATE: 20230331
